FAERS Safety Report 14625671 (Version 3)
Quarter: 2018Q2

REPORT INFORMATION
  Report Type: Spontaneous
  Country: US (occurrence: US)
  Receive Date: 20180312
  Receipt Date: 20180525
  Transmission Date: 20180711
  Serious: No
  Sender: FDA-Public Use
  Company Number: US-GLAXOSMITHKLINE-US2018036151

PATIENT
  Age: 51 Year
  Sex: Female

DRUGS (1)
  1. TARGET NTS 14MG TRANSDERMAL PATCH [Suspect]
     Active Substance: NICOTINE
     Indication: SMOKING CESSATION THERAPY
     Dosage: 14 MG, UNK
     Dates: start: 20180226, end: 20180301

REACTIONS (6)
  - Dizziness [Unknown]
  - Malaise [Unknown]
  - Product quality issue [Unknown]
  - Application site swelling [Unknown]
  - Application site pruritus [Unknown]
  - Application site rash [Unknown]

NARRATIVE: CASE EVENT DATE: 20180226
